FAERS Safety Report 19597338 (Version 1)
Quarter: 2021Q3

REPORT INFORMATION
  Report Type: Spontaneous
  Country: US (occurrence: US)
  Receive Date: 20210723
  Receipt Date: 20210723
  Transmission Date: 20211014
  Serious: No
  Sender: FDA-Public Use
  Company Number: US-AMGEN-USASP2021109905

PATIENT
  Sex: Male

DRUGS (1)
  1. REPATHA [Suspect]
     Active Substance: EVOLOCUMAB
     Indication: PRODUCT USED FOR UNKNOWN INDICATION
     Dosage: 140 MILLIGRAM, UNK
     Route: 065
     Dates: start: 202105

REACTIONS (4)
  - Pollakiuria [Unknown]
  - Abdominal pain [Unknown]
  - Sleep disorder due to a general medical condition [Unknown]
  - Urine analysis abnormal [Unknown]
